FAERS Safety Report 4752099-0 (Version None)
Quarter: 2005Q3

REPORT INFORMATION
  Report Type: 
  Country: None (occurrence: None)
  Receive Date: 20050825
  Receipt Date: 20050810
  Transmission Date: 20060218
  Serious: Yes (Disabling)
  Sender: FDA-Public Use
  Company Number: GB-BOEHRINGER INGELHEIM PHARMACEUTICALS, INC.-2005-BP-13822YA

PATIENT
  Sex: Male

DRUGS (3)
  1. FLOMAX [Suspect]
     Indication: PROSTATISM
     Route: 048
     Dates: start: 20040201
  2. FINASTERIDE [Concomitant]
     Route: 048
  3. ALLOPURINOL [Concomitant]
     Indication: GOUT
     Route: 048

REACTIONS (3)
  - IRIDOCELE [None]
  - IRIS ATROPHY [None]
  - POST PROCEDURAL COMPLICATION [None]
